FAERS Safety Report 6135972-0 (Version None)
Quarter: 2009Q1

REPORT INFORMATION
  Report Type: 
  Country: None (occurrence: None)
  Receive Date: 20090329
  Receipt Date: 20080725
  Transmission Date: 20090719
  Serious: No
  Sender: FDA-Public Use
  Company Number: US-BAUSCH-2008BL003267

PATIENT
  Age: 57 Year
  Sex: Female

DRUGS (4)
  1. LOTEMAX [Suspect]
     Indication: KERATOCONJUNCTIVITIS SICCA
     Route: 047
     Dates: start: 20080718, end: 20080718
  2. PLAQUENIL [Concomitant]
     Route: 048
  3. SYNTHROID [Concomitant]
     Indication: AUTOIMMUNE THYROIDITIS
     Route: 048
  4. VIGAMOX /USA/ [Concomitant]
     Route: 047
     Dates: start: 20080718

REACTIONS (2)
  - ABNORMAL SENSATION IN EYE [None]
  - MIGRAINE [None]
